FAERS Safety Report 7544967-1 (Version None)
Quarter: 2011Q2

REPORT INFORMATION
  Report Type: 
  Country: None (occurrence: None)
  Receive Date: 20110614
  Receipt Date: 20110524
  Transmission Date: 20111010
  Serious: Yes (Other)
  Sender: FDA-Public Use
  Company Number: US-BAYER-201018743NA

PATIENT
  Sex: Male
  Weight: 77 kg

DRUGS (31)
  1. GADOLINIUM IN UNSPECIFIED DRUG [Suspect]
     Dosage: UNK
     Dates: start: 20020410, end: 20020410
  2. OMNISCAN [Suspect]
     Indication: IMAGING PROCEDURE
     Dosage: UNK
     Dates: start: 20040701, end: 20040701
  3. GENGRAF [Concomitant]
  4. RENAGEL [Concomitant]
  5. OMNISCAN [Suspect]
     Indication: NUCLEAR MAGNETIC RESONANCE IMAGING BRAIN
  6. ENALAPRIL MALEATE [Concomitant]
  7. METOPROLOL SUCCINATE [Concomitant]
  8. ZOLOFT [Concomitant]
  9. PLENDIL [Concomitant]
  10. MONOPRIL [Concomitant]
  11. CELLCEPT [Concomitant]
  12. MAGNEVIST [Suspect]
     Indication: IMAGING PROCEDURE
  13. PLAVIX [Concomitant]
  14. PREDNISONE [Concomitant]
  15. NEORAL [Concomitant]
  16. ASPIRIN [Concomitant]
  17. OSCAL [Concomitant]
  18. FERROUS SULFATE TAB [Concomitant]
     Dosage: UNK
     Dates: start: 20011001, end: 20041001
  19. MULTIHANCE [Suspect]
     Indication: IMAGING PROCEDURE
  20. NEXIUM [Concomitant]
  21. RAPAMUNE [Concomitant]
  22. OMNISCAN [Suspect]
     Indication: NUCLEAR MAGNETIC RESONANCE IMAGING
     Dosage: UNK
     Dates: start: 20040718, end: 20040718
  23. OPTIMARK [Suspect]
     Indication: IMAGING PROCEDURE
  24. VICODIN [Concomitant]
  25. NEUTRA-PHOS [Concomitant]
  26. ALTACE [Concomitant]
  27. PROHANCE [Suspect]
     Indication: IMAGING PROCEDURE
  28. FELODIPINE [Concomitant]
  29. NEPHROVITE [VIT C,VIT H,B5,B12,B9,B3,B6,B2,B1 HCL] [Concomitant]
  30. BACTRIM [Concomitant]
  31. EPOGEN [Concomitant]
     Dosage: UNK
     Dates: start: 20011001, end: 20041001

REACTIONS (25)
  - NEPHROGENIC SYSTEMIC FIBROSIS [None]
  - JOINT STIFFNESS [None]
  - ALOPECIA [None]
  - DEFORMITY [None]
  - JOINT RANGE OF MOTION DECREASED [None]
  - JOINT SWELLING [None]
  - FIBROSIS [None]
  - SKIN HYPERTROPHY [None]
  - SKIN TIGHTNESS [None]
  - PAIN IN EXTREMITY [None]
  - MYOSCLEROSIS [None]
  - RASH [None]
  - PAIN [None]
  - SKIN INDURATION [None]
  - ARTHRALGIA [None]
  - NEUROPATHY PERIPHERAL [None]
  - OEDEMA PERIPHERAL [None]
  - ONYCHOMADESIS [None]
  - OEDEMA [None]
  - RASH PAPULAR [None]
  - SKIN PLAQUE [None]
  - GENERAL PHYSICAL HEALTH DETERIORATION [None]
  - SCAR [None]
  - MOBILITY DECREASED [None]
  - TRANSIENT ISCHAEMIC ATTACK [None]
